FAERS Safety Report 14092452 (Version 1)
Quarter: 2017Q4

REPORT INFORMATION
  Report Type: Spontaneous
  Country: US (occurrence: None)
  Receive Date: 20171016
  Receipt Date: 20171016
  Transmission Date: 20180321
  Serious: No
  Sender: FDA-Public Use
  Company Number: None

PATIENT
  Age: 31 Year
  Sex: Female
  Weight: 58.97 kg

DRUGS (1)
  1. SUBOXONE [Suspect]
     Active Substance: BUPRENORPHINE HYDROCHLORIDE\NALOXONE HYDROCHLORIDE
     Indication: DRUG DEPENDENCE
     Dosage: DOSE - 16/4MG?FREQUENCY - DAILY AM (PARTIALLY ILLEGIBLE)
     Route: 060
     Dates: start: 20151016

REACTIONS (1)
  - Malaise [None]

NARRATIVE: CASE EVENT DATE: 20151116
